FAERS Safety Report 5196621-1 (Version None)
Quarter: 2007Q1

REPORT INFORMATION
  Report Type: 
  Country: None (occurrence: None)
  Receive Date: 20070103
  Receipt Date: 20061225
  Transmission Date: 20070707
  Serious: Yes (Other)
  Sender: FDA-Public Use
  Company Number: PHBS2006NL20014

PATIENT
  Age: 54 Year
  Sex: Female
  Weight: 80 kg

DRUGS (3)
  1. DIOVAN [Suspect]
     Indication: ESSENTIAL HYPERTENSION
     Dosage: 80 MG, QD
     Route: 048
     Dates: start: 20060411, end: 20061127
  2. PROPRANOLOL [Concomitant]
     Dosage: 10 MG, QD
     Dates: start: 20051104
  3. EFFEXOR XR [Concomitant]
     Dosage: 1 DF, QD
     Dates: start: 19990112

REACTIONS (1)
  - TONGUE OEDEMA [None]
